FAERS Safety Report 11226438 (Version 6)
Quarter: 2015Q4

REPORT INFORMATION
  Report Type: Report from Study
  Country: AU (occurrence: AU)
  Receive Date: 20150629
  Receipt Date: 20151117
  Transmission Date: 20160304
  Serious: Yes (Hospitalization, Other)
  Sender: FDA-Public Use
  Company Number: AU-ABBVIE-15K-008-1416216-00

PATIENT
  Age: 62 Year
  Sex: Female

DRUGS (1)
  1. HUMIRA [Suspect]
     Active Substance: ADALIMUMAB
     Indication: PSORIATIC ARTHROPATHY
     Route: 058
     Dates: start: 20150408, end: 20150617

REACTIONS (13)
  - Urinary retention postoperative [Recovered/Resolved]
  - Post procedural discharge [Unknown]
  - Procedural complication [Unknown]
  - Infection [Recovered/Resolved]
  - Faecaloma [Unknown]
  - Hyperhidrosis [Unknown]
  - Urinary retention postoperative [Recovered/Resolved]
  - Post procedural complication [Unknown]
  - Psoriatic arthropathy [Recovering/Resolving]
  - Injection site pain [Recovering/Resolving]
  - Haemorrhoids [Not Recovered/Not Resolved]
  - Painful defaecation [Unknown]
  - Skin candida [Unknown]

NARRATIVE: CASE EVENT DATE: 2015
